FAERS Safety Report 5313967-4 (Version None)
Quarter: 2007Q2

REPORT INFORMATION
  Report Type: 
  Country: None (occurrence: None)
  Receive Date: 20070501
  Receipt Date: 20070321
  Transmission Date: 20071010
  Serious: Yes (Other)
  Sender: FDA-Public Use
  Company Number: US-PFIZER INC-2006052197

PATIENT
  Sex: Female
  Weight: 137 kg

DRUGS (9)
  1. BEXTRA [Suspect]
     Indication: ARTHRALGIA
     Dates: start: 20020501, end: 20050401
  2. DETROL LA [Concomitant]
  3. PROZAC [Concomitant]
  4. TRICOR [Concomitant]
  5. LOSARTAN POSTASSIUM [Concomitant]
  6. GLUCOTROL XL [Concomitant]
  7. GLUCOPHAGE [Concomitant]
  8. TOPROL-XL [Concomitant]
  9. LIPITOR [Concomitant]

REACTIONS (1)
  - STEVENS-JOHNSON SYNDROME [None]
